FAERS Safety Report 5853957-6 (Version None)
Quarter: 2008Q3

REPORT INFORMATION
  Report Type: 
  Country: None (occurrence: None)
  Receive Date: 20080822
  Receipt Date: 20080812
  Transmission Date: 20090109
  Serious: Yes (Death)
  Sender: FDA-Public Use
  Company Number: B0533831A

PATIENT
  Age: 80 Year
  Sex: Male

DRUGS (2)
  1. AUGMENTIN '125' [Suspect]
     Dosage: 1G PER DAY
     Route: 042
     Dates: start: 20080811, end: 20080811
  2. KABIVEN [Suspect]
     Indication: DRUG USE FOR UNKNOWN INDICATION
     Route: 042
     Dates: start: 20080101, end: 20080801

REACTIONS (6)
  - ABDOMINAL PAIN [None]
  - ASPHYXIA [None]
  - DEATH [None]
  - DRUG CHEMICAL INCOMPATIBILITY [None]
  - OFF LABEL USE [None]
  - RESPIRATORY DISORDER [None]
